FAERS Safety Report 6181950-5 (Version None)
Quarter: 2009Q2

REPORT INFORMATION
  Report Type: 
  Country: None (occurrence: None)
  Receive Date: 20090505
  Receipt Date: 20090413
  Transmission Date: 20091009
  Serious: Yes (Hospitalization, Other)
  Sender: FDA-Public Use
  Company Number: M-09-0258

PATIENT
  Age: 22 Year
  Sex: Male

DRUGS (4)
  1. DIVALPROEX SODIUM [Suspect]
     Indication: CONVULSION
     Dosage: 1250MG QAM AND 1500MG QPM, PO
     Route: 048
     Dates: start: 20090101, end: 20090221
  2. DICLOFENAC SODIUM [Concomitant]
  3. VERAPAMIL EXTENDED-RELEASE [Concomitant]
  4. LEVETIRACETAM [Concomitant]

REACTIONS (7)
  - ANTICONVULSANT DRUG LEVEL BELOW THERAPEUTIC [None]
  - CONVULSION [None]
  - DISEASE RECURRENCE [None]
  - FATIGUE [None]
  - GRAND MAL CONVULSION [None]
  - MUSCLE TWITCHING [None]
  - TREMOR [None]
